FAERS Safety Report 8106825-3 (Version None)
Quarter: 2012Q1

REPORT INFORMATION
  Report Type: 
  Country: None (occurrence: None)
  Receive Date: 20120130
  Receipt Date: 20120116
  Transmission Date: 20120608
  Serious: Yes (Death)
  Sender: FDA-Public Use
  Company Number: 2012POI057500018

PATIENT
  Age: 61 Year
  Sex: Male

DRUGS (3)
  1. ROXICODONE [Suspect]
     Dosage: PER ORAL
     Route: 048
     Dates: end: 20100101
  2. ACETAMINOPHEN AND HYDROCODONE BITARTRATE [Suspect]
     Dosage: PER ORAL
     Route: 048
     Dates: end: 20100101
  3. ATENOLOL [Suspect]
     Dosage: PER ORAL
     Route: 048
     Dates: end: 20100101

REACTIONS (1)
  - COMPLETED SUICIDE [None]
